FAERS Safety Report 9387905 (Version 1)
Quarter: 2013Q3

REPORT INFORMATION
  Report Type: Spontaneous
  Country: US (occurrence: None)
  Receive Date: 20130701
  Receipt Date: 20130701
  Transmission Date: 20140515
  Serious: Yes (Hospitalization)
  Sender: FDA-Public Use
  Company Number: 1766431

PATIENT
  Age: 61 Year
  Sex: Female
  Weight: 65.8 kg

DRUGS (16)
  1. MEDROXYPROGESTERONE ACETATE [Suspect]
  2. PREMARIN [Suspect]
  3. CRANBERRY [Suspect]
  4. IRON [Suspect]
  5. PANTOPRAZOLE SODIUM SESQUIHYDRATE [Suspect]
  6. VALACICLOVIR HYDROCHLORIDE [Suspect]
  7. LEVOTHYROXINE [Suspect]
  8. VITAMIN D [Suspect]
  9. GLUCOSAMINE SULFATE [Suspect]
  10. NABUMETONE [Suspect]
  11. FISH OIL [Suspect]
  12. MEROPENEM [Suspect]
     Indication: SEPSIS
  13. DALFAMPRIDINE [Suspect]
     Route: 048
  14. NATALIZUMAB [Suspect]
     Indication: MULTIPLE SCLEROSIS
  15. BACLOFEN [Suspect]
  16. VITAMIN C [Suspect]

REACTIONS (3)
  - Renal impairment [None]
  - Unresponsive to stimuli [None]
  - Urinary tract infection [None]
